FAERS Safety Report 6050195-1 (Version None)
Quarter: 2009Q1

REPORT INFORMATION
  Report Type: 
  Country: None (occurrence: None)
  Receive Date: 20090122
  Receipt Date: 20090122
  Transmission Date: 20090719
  Serious: Yes (Other)
  Sender: FDA-Public Use
  Company Number: None

PATIENT
  Age: 47 Year
  Sex: Female
  Weight: 77.1115 kg

DRUGS (1)
  1. GLUCOPHAGE [Suspect]
     Indication: GLYCOSYLATED HAEMOGLOBIN INCREASED
     Dosage: 1 500 MG TABLET ONCE PER DAY PO
     Route: 048
     Dates: start: 20090101, end: 20090119

REACTIONS (2)
  - BURNING SENSATION [None]
  - PERIPHERAL COLDNESS [None]
